FAERS Safety Report 19802101 (Version 3)
Quarter: 2021Q4

REPORT INFORMATION
  Report Type: Spontaneous
  Country: US (occurrence: US)
  Receive Date: 20210908
  Receipt Date: 20211119
  Transmission Date: 20220304
  Serious: No
  Sender: FDA-Public Use
  Company Number: US-AIMMUNE THERAPEUTICS, INC.-2021AIMT00512

PATIENT

DRUGS (4)
  1. PALFORZIA [Suspect]
     Active Substance: PEANUT
     Indication: Food allergy
     Dosage: 40 MG, 1X/DAY
     Route: 048
     Dates: start: 20210806, end: 202109
  2. PALFORZIA [Suspect]
     Active Substance: PEANUT
     Dosage: 20 MG, 1X/DAY
     Route: 048
     Dates: start: 202109, end: 20211025
  3. PALFORZIA [Suspect]
     Active Substance: PEANUT
     Dosage: 32 MG, 1X/DAY
     Route: 048
     Dates: start: 20211026, end: 20211028
  4. PALFORZIA [Suspect]
     Active Substance: PEANUT
     Dosage: 20 MG, 1X/DAY
     Route: 048
     Dates: start: 20211029

REACTIONS (2)
  - Drug intolerance [Unknown]
  - Vomiting [Unknown]
